FAERS Safety Report 6432746-8 (Version None)
Quarter: 2009Q4

REPORT INFORMATION
  Report Type: 
  Country: None (occurrence: None)
  Receive Date: 20091109
  Receipt Date: 20091030
  Transmission Date: 20100525
  Serious: Yes (Life-Threatening, Hospitalization)
  Sender: FDA-Public Use
  Company Number: US-ABBOTT-09P-163-0606211-00

PATIENT
  Weight: 82 kg

DRUGS (18)
  1. HUMIRA [Suspect]
     Indication: RHEUMATOID ARTHRITIS
     Route: 058
     Dates: start: 20010314, end: 20091020
  2. COZAAR [Concomitant]
     Indication: HYPERTENSION
     Dates: start: 20030308
  3. LANSOPRAZOLE [Concomitant]
     Indication: DYSPEPSIA
     Dates: start: 20010314, end: 20050720
  4. MAXITROL [Concomitant]
     Indication: CONJUNCTIVITIS ALLERGIC
     Dates: start: 20070912, end: 20070926
  5. AUGMENTIN [Concomitant]
     Indication: SINUSITIS
     Dosage: 875/125 MG
     Dates: start: 20071107, end: 20071121
  6. AUGMENTIN [Concomitant]
     Indication: PNEUMONIA
  7. XANAX [Concomitant]
     Indication: ANXIETY
     Dates: start: 20090204
  8. PRILOSEC [Concomitant]
     Indication: NAUSEA
     Dates: start: 20090204
  9. HYDROCODONE [Concomitant]
     Indication: MUSCLE STRAIN
     Dosage: 5/500MG
     Dates: start: 20090625
  10. AMRIX [Concomitant]
     Indication: MUSCLE STRAIN
     Dates: start: 20090625, end: 20090701
  11. PREDNISONE [Concomitant]
     Indication: RHEUMATOID ARTHRITIS
     Dates: start: 19970620
  12. FOLIC ACID [Concomitant]
     Indication: RHEUMATOID ARTHRITIS
     Dates: start: 19960812
  13. ASPIRIN [Concomitant]
     Indication: RHEUMATOID ARTHRITIS
     Dates: start: 20040103, end: 20090922
  14. TRAMADOL HCL [Concomitant]
     Indication: RHEUMATOID ARTHRITIS
     Dates: start: 19970320
  15. MELOXICAM [Concomitant]
     Indication: RHEUMATOID ARTHRITIS
     Dates: start: 20090922
  16. METHOTREXATE [Concomitant]
     Indication: RHEUMATOID ARTHRITIS
     Dates: start: 20040310, end: 20080430
  17. METHOTREXATE [Concomitant]
     Dates: start: 20080922, end: 20080922
  18. METHOTREXATE [Concomitant]
     Dates: start: 20081117

REACTIONS (1)
  - NON-HODGKIN'S LYMPHOMA [None]
